FAERS Safety Report 26136753 (Version 1)
Quarter: 2025Q4

REPORT INFORMATION
  Report Type: Spontaneous
  Country: US (occurrence: None)
  Receive Date: 20251209
  Receipt Date: 20251209
  Transmission Date: 20260118
  Serious: Yes (Hospitalization)
  Sender: FDA-CTU
  Company Number: None

PATIENT
  Age: 56 Year
  Sex: Male

DRUGS (13)
  1. TIVICAY [Suspect]
     Active Substance: DOLUTEGRAVIR SODIUM
     Dosage: FREQUENCY : DAILY;
     Route: 048
     Dates: start: 20240717
  2. DESCOVY [Suspect]
     Active Substance: EMTRICITABINE\TENOFOVIR ALAFENAMIDE FUMARATE
     Dosage: FREQUENCY : DAILY;
     Route: 048
     Dates: start: 20240717
  3. WARFARIN [Concomitant]
     Active Substance: WARFARIN
     Dates: start: 20250403
  4. enoxaparin 60mg [Concomitant]
     Dates: start: 20251003
  5. ASPIRIN [Concomitant]
     Active Substance: ASPIRIN
     Dates: start: 20240717
  6. TORSEMIDE [Concomitant]
     Active Substance: TORSEMIDE
     Dates: start: 20240717
  7. CARVEDILOL [Concomitant]
     Active Substance: CARVEDILOL
     Dates: start: 20240717
  8. melatonin 3mg [Concomitant]
     Dates: start: 20240717
  9. MINERALS\VITAMINS [Concomitant]
     Active Substance: MINERALS\VITAMINS
     Dates: start: 20251007
  10. ATORVASTATIN [Concomitant]
     Active Substance: ATORVASTATIN
     Dates: start: 20240717
  11. AMIODARONE [Concomitant]
     Active Substance: AMIODARONE
     Dates: start: 20240717
  12. FOLIC ACID [Concomitant]
     Active Substance: FOLIC ACID
     Dates: start: 20240717
  13. VITAMIN B COMPLEX [Concomitant]
     Active Substance: CYANOCOBALAMIN\DEXPANTHENOL\NIACINAMIDE\PYRIDOXINE HYDROCHLORIDE\RIBOFLAVIN 5^-PHOSPHATE SODIUM\THIA
     Dates: start: 20240717

REACTIONS (4)
  - Chronic obstructive pulmonary disease [None]
  - CD4 lymphocytes decreased [None]
  - Viral load [None]
  - Treatment noncompliance [None]

NARRATIVE: CASE EVENT DATE: 20251208
